FAERS Safety Report 13784949 (Version 2)
Quarter: 2017Q4

REPORT INFORMATION
  Report Type: Spontaneous
  Country: US (occurrence: US)
  Receive Date: 20170724
  Receipt Date: 20171024
  Transmission Date: 20180320
  Serious: No
  Sender: FDA-Public Use
  Company Number: US-IMPAX LABORATORIES, INC-2017-IPXL-02092

PATIENT
  Sex: Male
  Weight: 73 kg

DRUGS (2)
  1. RYTARY [Suspect]
     Active Substance: CARBIDOPA\LEVODOPA
     Indication: PARKINSON^S DISEASE
     Dosage: 1 DF, 3 /DAY
     Route: 048
  2. RYTARY [Suspect]
     Active Substance: CARBIDOPA\LEVODOPA
     Dosage: 36.25/145 MG, ONE CAPSULE THREE TIMES DAILY
     Route: 048
     Dates: start: 201611

REACTIONS (5)
  - Confusional state [Recovered/Resolved]
  - Memory impairment [Unknown]
  - Fall [Recovered/Resolved]
  - Tremor [Recovering/Resolving]
  - Hallucination [Recovered/Resolved]
